FAERS Safety Report 18656533 (Version 1)
Quarter: 2020Q4

REPORT INFORMATION
  Report Type: Spontaneous
  Country: IT (occurrence: IT)
  Receive Date: 20201223
  Receipt Date: 20201223
  Transmission Date: 20210114
  Serious: Yes (Hospitalization)
  Sender: FDA-Public Use
  Company Number: IT-ELI_LILLY_AND_COMPANY-IT202012010490

PATIENT
  Age: 41 Year
  Sex: Male

DRUGS (2)
  1. ALCOVER [Concomitant]
     Active Substance: SODIUM OXYBATE
     Indication: PRODUCT USED FOR UNKNOWN INDICATION
  2. HUMALOG [Suspect]
     Active Substance: INSULIN LISPRO
     Indication: DRUG ABUSE
     Dosage: 70 INTERNATIONAL UNIT, UNKNOWN
     Route: 058
     Dates: start: 20201203, end: 20201203

REACTIONS (3)
  - Drug abuse [Recovered/Resolved]
  - Intentional self-injury [Recovered/Resolved]
  - Hypoglycaemia [Recovered/Resolved]

NARRATIVE: CASE EVENT DATE: 20201203
